FAERS Safety Report 12359459 (Version 2)
Quarter: 2016Q2

REPORT INFORMATION
  Report Type: Spontaneous
  Country: US (occurrence: US)
  Receive Date: 20160512
  Receipt Date: 20160517
  Transmission Date: 20160815
  Serious: Yes (Other)
  Sender: FDA-Public Use
  Company Number: US-TEVA-659042USA

PATIENT
  Age: 39 Year
  Sex: Female

DRUGS (1)
  1. ZECUITY [Suspect]
     Active Substance: SUMATRIPTAN SUCCINATE
     Route: 062
     Dates: start: 20160506

REACTIONS (5)
  - Device use error [Unknown]
  - Device issue [Unknown]
  - Device failure [Unknown]
  - Device battery issue [Unknown]
  - Application site burn [Unknown]

NARRATIVE: CASE EVENT DATE: 20160506
